FAERS Safety Report 6807677-1 (Version None)
Quarter: 2010Q2

REPORT INFORMATION
  Report Type: 
  Country: None (occurrence: None)
  Receive Date: 20100629
  Receipt Date: 20090129
  Transmission Date: 20101027
  Serious: No
  Sender: FDA-Public Use
  Company Number: US-PFIZER INC-2008094345

PATIENT
  Sex: Female
  Weight: 67 kg

DRUGS (5)
  1. ARTHROTEC [Suspect]
     Indication: ARTHRITIS
     Dates: start: 20080901, end: 20081104
  2. VOLTAREN [Suspect]
  3. NORVASC [Concomitant]
     Indication: HYPERTENSION
  4. CITALOPRAM [Concomitant]
     Indication: DEPRESSION
  5. PROTONIX [Concomitant]

REACTIONS (5)
  - DECREASED APPETITE [None]
  - DIARRHOEA [None]
  - MALAISE [None]
  - NAUSEA [None]
  - VOMITING [None]
